FAERS Safety Report 20149698 (Version 1)
Quarter: 2021Q4

REPORT INFORMATION
  Report Type: Spontaneous
  Country: FR (occurrence: FR)
  Receive Date: 20211206
  Receipt Date: 20211206
  Transmission Date: 20220304
  Serious: Yes (Hospitalization)
  Sender: FDA-Public Use
  Company Number: FR-AFSSAPS-RS20214021

PATIENT
  Age: 30 Year
  Sex: Male
  Weight: 40 kg

DRUGS (1)
  1. LEVOFLOXACIN [Suspect]
     Active Substance: LEVOFLOXACIN
     Indication: Pulmonary tuberculosis
     Dosage: 500 MILLIGRAM, ONCE A DAY
     Route: 048
     Dates: start: 20211011, end: 20211015

REACTIONS (1)
  - Axonal neuropathy [Recovering/Resolving]

NARRATIVE: CASE EVENT DATE: 20211013
